FAERS Safety Report 13995734 (Version 3)
Quarter: 2018Q3

REPORT INFORMATION
  Report Type: Spontaneous
  Country: US (occurrence: US)
  Receive Date: 20170921
  Receipt Date: 20180824
  Transmission Date: 20181010
  Serious: No
  Sender: FDA-Public Use
  Company Number: US-PFIZER INC-2017407342

PATIENT
  Age: 61 Year
  Sex: Female
  Weight: 112.4 kg

DRUGS (6)
  1. JANUVIA [Concomitant]
     Active Substance: SITAGLIPTIN PHOSPHATE
     Indication: DIABETES MELLITUS
     Dosage: 100 MG, ONCE DAILY (AT NIGHT)
     Dates: start: 2017
  2. LYRICA [Suspect]
     Active Substance: PREGABALIN
     Indication: NEUROPATHY PERIPHERAL
     Dosage: 75 MG, THRICE DAILY
     Route: 048
     Dates: start: 201707, end: 2017
  3. LYRICA [Suspect]
     Active Substance: PREGABALIN
     Indication: DIABETIC NEUROPATHY
  4. TOUJEO [Concomitant]
     Active Substance: INSULIN GLARGINE
     Indication: DIABETES MELLITUS
     Dosage: 20 IU, ONCE DAILY (AT NIGHT)
     Dates: start: 2016
  5. SERTRALINE [Concomitant]
     Active Substance: SERTRALINE HYDROCHLORIDE
     Indication: ANXIETY
     Dosage: 100 MG, ONCE DAILY
     Dates: start: 2012
  6. LYRICA [Suspect]
     Active Substance: PREGABALIN
     Indication: FIBROMYALGIA
     Dosage: 75 MG, THRICE DAILY
     Route: 048
     Dates: start: 20170812, end: 201708

REACTIONS (2)
  - Swelling [Recovered/Resolved]
  - Drug ineffective [Recovered/Resolved]

NARRATIVE: CASE EVENT DATE: 2017
